FAERS Safety Report 19990302 (Version 1)
Quarter: 2021Q4

REPORT INFORMATION
  Report Type: Spontaneous
  Country: US (occurrence: US)
  Receive Date: 20211021
  Receipt Date: 20211021
  Transmission Date: 20220304
  Serious: Yes (Other)
  Sender: FDA-Public Use
  Company Number: None

PATIENT
  Age: 59 Year
  Sex: Male

DRUGS (2)
  1. SANDIMMUNE [Suspect]
     Active Substance: CYCLOSPORINE
     Indication: Renal transplant
     Route: 048
     Dates: start: 199112
  2. AZASAN [Suspect]
     Active Substance: AZATHIOPRINE
     Indication: Renal transplant
     Route: 048
     Dates: start: 199112

REACTIONS (1)
  - Skin cancer [None]

NARRATIVE: CASE EVENT DATE: 20211001
